FAERS Safety Report 7121349-8 (Version None)
Quarter: 2010Q4

REPORT INFORMATION
  Report Type: 
  Country: None (occurrence: None)
  Receive Date: 20101124
  Receipt Date: 20101111
  Transmission Date: 20110411
  Serious: Yes (Death, Other)
  Sender: FDA-Public Use
  Company Number: PHHY2009US52798

PATIENT
  Sex: Male

DRUGS (2)
  1. CLOZARIL [Suspect]
  2. ZYPREXA [Suspect]

REACTIONS (8)
  - ABNORMAL BEHAVIOUR [None]
  - APRAXIA [None]
  - COMPLETED SUICIDE [None]
  - HEAD INJURY [None]
  - HYPERTENSION [None]
  - OEDEMA PERIPHERAL [None]
  - PAIN [None]
  - SELF INJURIOUS BEHAVIOUR [None]
